FAERS Safety Report 6767597-8 (Version None)
Quarter: 2010Q2

REPORT INFORMATION
  Report Type: 
  Country: None (occurrence: None)
  Receive Date: 20100614
  Receipt Date: 20100609
  Transmission Date: 20101027
  Serious: Yes (Death, Hospitalization)
  Sender: FDA-Public Use
  Company Number: PHHY2009VE50553

PATIENT
  Sex: Male

DRUGS (2)
  1. SANDOSTATIN LAR [Suspect]
     Indication: ACROMEGALY
     Dosage: 20 MG, EVERY 21 DAYS
     Dates: start: 20080801, end: 20090101
  2. SANDOSTATIN LAR [Suspect]
     Dosage: 20 MG, EVERY 21 DAYS
     Dates: start: 20090301

REACTIONS (1)
  - PNEUMONIA [None]
